FAERS Safety Report 9699117 (Version 4)
Quarter: 2014Q1

REPORT INFORMATION
  Report Type: Spontaneous
  Country: JP (occurrence: JP)
  Receive Date: 20131120
  Receipt Date: 20140130
  Transmission Date: 20141002
  Serious: Yes (Hospitalization)
  Sender: FDA-Public Use
  Company Number: JP-ROCHE-1292411

PATIENT
  Age: 62 Year
  Sex: Female

DRUGS (8)
  1. LUCENTIS [Suspect]
     Indication: MACULAR OEDEMA
     Route: 050
     Dates: start: 20130918
  2. LUCENTIS [Suspect]
     Indication: RETINAL VEIN OCCLUSION
  3. TAZIN (JAPAN) [Concomitant]
     Route: 048
     Dates: start: 20130905, end: 20131015
  4. BROMFENAC [Concomitant]
     Route: 065
     Dates: start: 20130905, end: 20131015
  5. XOLAIR [Concomitant]
     Route: 065
  6. NEVANAC [Concomitant]
     Route: 065
     Dates: start: 20131106, end: 20131219
  7. SULFUR HEXAFLUORIDE GAS [Concomitant]
  8. CRAVIT [Concomitant]
     Route: 065
     Dates: start: 20131106, end: 20131219

REACTIONS (1)
  - Macular hole [Recovering/Resolving]
